FAERS Safety Report 8344666-2 (Version None)
Quarter: 2012Q2

REPORT INFORMATION
  Report Type: 
  Country: None (occurrence: None)
  Receive Date: 20120508
  Receipt Date: 20120501
  Transmission Date: 20120825
  Serious: Yes (Other)
  Sender: FDA-Public Use
  Company Number: US-JNJFOC-20120408742

PATIENT
  Sex: Female
  Weight: 58.06 kg

DRUGS (6)
  1. NEURONTIN [Concomitant]
     Indication: NEURALGIA
     Route: 048
  2. LEVAQUIN [Suspect]
     Indication: PNEUMONIA
     Route: 048
     Dates: start: 20120109, end: 20120128
  3. CELEBREX [Concomitant]
     Route: 048
  4. CELEBREX [Concomitant]
     Indication: OSTEOARTHRITIS
     Route: 048
  5. ZOLOFT [Concomitant]
     Indication: DEPRESSION
     Route: 048
  6. ROBITUSSIN AC [Concomitant]
     Indication: COUGH
     Route: 065
     Dates: start: 20120109

REACTIONS (5)
  - ARTHRALGIA [None]
  - TENDON DISORDER [None]
  - BACK PAIN [None]
  - JOINT SWELLING [None]
  - ARTHROPATHY [None]
